FAERS Safety Report 4288613-1 (Version None)
Quarter: 2004Q1

REPORT INFORMATION
  Report Type: 
  Country: None (occurrence: None)
  Receive Date: 20040205
  Receipt Date: 20040123
  Transmission Date: 20041129
  Serious: Yes (Other)
  Sender: FDA-Public Use
  Company Number: 2004004029

PATIENT
  Age: 76 Year
  Sex: Female

DRUGS (2)
  1. NORVASC [Suspect]
     Indication: HYPERTENSION
     Dosage: 5 MG ORAL
     Route: 048
     Dates: start: 20020921, end: 20040120
  2. TELMISARTAN (TELMISARTAN) [Suspect]
     Indication: HYPERTENSION
     Dosage: 40 MG ORAL
     Route: 048
     Dates: start: 20030217

REACTIONS (1)
  - ELECTROCARDIOGRAM QT PROLONGED [None]
